FAERS Safety Report 7474567-3 (Version None)
Quarter: 2011Q2

REPORT INFORMATION
  Report Type: 
  Country: None (occurrence: None)
  Receive Date: 20110503
  Receipt Date: 20110411
  Transmission Date: 20111010
  Serious: Yes (Hospitalization)
  Sender: FDA-Public Use
  Company Number: BE-022474

PATIENT
  Age: 80 Year
  Sex: Male

DRUGS (2)
  1. OFATUMUMAB [Suspect]
     Indication: CHRONIC LYMPHOCYTIC LEUKAEMIA
     Dosage: I300 MG AT DAY 1,000 MG AT DAY 8 FOLLOWED BY 1000 MG EVERY 28 DAYS,NTRAVENOUS
     Route: 042
     Dates: start: 20101014
  2. CHLORAMBUCIL [Suspect]
     Indication: CHRONIC LYMPHOCYTIC LEUKAEMIA
     Dosage: 10 MG/M2, ORAL
     Route: 048
     Dates: start: 20101014

REACTIONS (2)
  - PNEUMONIA [None]
  - ACUTE RESPIRATORY DISTRESS SYNDROME [None]
